FAERS Safety Report 6205640-5 (Version None)
Quarter: 2009Q2

REPORT INFORMATION
  Report Type: 
  Country: None (occurrence: None)
  Receive Date: 20090527
  Receipt Date: 20090408
  Transmission Date: 20091009
  Serious: No
  Sender: FDA-Public Use
  Company Number: US-ABBOTT-09P-163-0567974-00

PATIENT
  Age: 30 Year
  Sex: Male

DRUGS (2)
  1. SIMCOR [Suspect]
     Indication: HIGH DENSITY LIPOPROTEIN DECREASED
     Route: 048
     Dates: start: 20090301, end: 20090403
  2. SIMCOR [Suspect]
     Indication: HIGH DENSITY LIPOPROTEIN INCREASED

REACTIONS (1)
  - DIZZINESS [None]
